FAERS Safety Report 5142180-9 (Version None)
Quarter: 2006Q4

REPORT INFORMATION
  Report Type: 
  Country: None (occurrence: None)
  Receive Date: 20061102
  Receipt Date: 20061018
  Transmission Date: 20070319
  Serious: Yes (Hospitalization, Other)
  Sender: FDA-Public Use
  Company Number: CA-AMGEN-US197375

PATIENT
  Sex: Female
  Weight: 61.3 kg

DRUGS (4)
  1. ENBREL [Suspect]
     Indication: RHEUMATOID ARTHRITIS
     Route: 058
     Dates: start: 20041208
  2. ARAVA [Suspect]
     Route: 048
     Dates: start: 20040102
  3. PLAQUENIL [Concomitant]
  4. PANTOPRAZOLE SODIUM [Concomitant]

REACTIONS (4)
  - BREAST CANCER [None]
  - HIP ARTHROPLASTY [None]
  - OESTROGEN RECEPTOR ASSAY POSITIVE [None]
  - PROGESTERONE RECEPTOR ASSAY POSITIVE [None]
